FAERS Safety Report 7313363-4 (Version None)
Quarter: 2011Q1

REPORT INFORMATION
  Report Type: 
  Country: None (occurrence: None)
  Receive Date: 20110215
  Receipt Date: 20110215
  Transmission Date: 20110831
  Serious: Yes (Life-Threatening, Disabling)
  Sender: FDA-Public Use
  Company Number: None

PATIENT
  Age: 62 Year
  Sex: Female
  Weight: 62.5964 kg

DRUGS (2)
  1. SEPTOCAINE [Suspect]
     Indication: ANAESTHESIA PROCEDURE
     Dates: start: 20090601
  2. LIDOCAINE [Suspect]
     Indication: ANAESTHESIA PROCEDURE
     Dates: start: 20090601

REACTIONS (8)
  - LIP BLISTER [None]
  - LIP SWELLING [None]
  - CONDUCTION DISORDER [None]
  - GINGIVAL BLISTER [None]
  - GINGIVAL SWELLING [None]
  - MULTIPLE DRUG OVERDOSE [None]
  - GINGIVAL DISORDER [None]
  - CARDIAC MURMUR [None]
